FAERS Safety Report 4356771-6 (Version None)
Quarter: 2004Q2

REPORT INFORMATION
  Report Type: 
  Country: None (occurrence: None)
  Receive Date: 20040507
  Receipt Date: 20040429
  Transmission Date: 20050107
  Serious: Yes (Hospitalization)
  Sender: FDA-Public Use
  Company Number: 2004CG00710

PATIENT
  Age: 7 Year
  Sex: Male

DRUGS (22)
  1. MOPRAL [Suspect]
     Dosage: 20 MG DAILY PO
     Route: 048
     Dates: end: 20040318
  2. CLAFORAN [Suspect]
     Dosage: 1 G TID IV
     Route: 042
     Dates: start: 20040303, end: 20040319
  3. NARCOZEP [Suspect]
     Dates: start: 20040223, end: 20040226
  4. NARCOZEP [Suspect]
     Dosage: 0.56 MG DAILY IV
     Route: 042
     Dates: start: 20040302, end: 20040314
  5. NESDONAL [Suspect]
     Dosage: 56 MG DAILY IV
     Route: 042
     Dates: start: 20040223, end: 20040201
  6. NESDONAL [Suspect]
     Dosage: 56 MG DAILY IV
     Route: 042
     Dates: start: 20040310, end: 20040301
  7. SOLU-MEDROL [Suspect]
     Dosage: 30 MG DAILY IV
     Route: 042
  8. FENTANYL [Suspect]
     Dosage: 70 UG DAILY IV
     Route: 042
     Dates: start: 20040223, end: 20040305
  9. FENTANYL [Suspect]
     Dosage: 70 UG DAILY IV
     Route: 042
     Dates: start: 20040317, end: 20040322
  10. ADALAT [Suspect]
     Dosage: 20 MG BID PO
     Route: 048
     Dates: end: 20040223
  11. SECTRAL [Suspect]
     Dosage: 2 ML BID
     Dates: end: 20040223
  12. ASPEGIC 325 [Suspect]
     Dosage: 100 MG
     Dates: end: 20040223
  13. LASIX [Suspect]
     Dates: start: 20040223, end: 20040224
  14. LASIX [Suspect]
     Dates: start: 20040305, end: 20040306
  15. ACETAMINOPHEN [Suspect]
     Dosage: 330 MG QID
     Dates: start: 20040223, end: 20040226
  16. ACETAMINOPHEN [Suspect]
     Dates: start: 20040304, end: 20040301
  17. ORBENIN CAP [Suspect]
     Dates: start: 20040223, end: 20040226
  18. TEGELINE [Suspect]
     Dates: start: 20040223, end: 20040228
  19. TRANDATE [Suspect]
     Indication: HYPERTENSION
     Dates: start: 20040224, end: 20040201
  20. ENDOXAN [Suspect]
     Dates: start: 20031212, end: 20031212
  21. ENDOXAN [Suspect]
     Dates: start: 20040109, end: 20040109
  22. ENDOXAN [Suspect]
     Dates: start: 20040206, end: 20040206

REACTIONS (19)
  - BONE MARROW DEPRESSION [None]
  - C-REACTIVE PROTEIN INCREASED [None]
  - CEREBRAL HAEMORRHAGE [None]
  - COMA [None]
  - DECEREBRATION [None]
  - EXTENSOR PLANTAR RESPONSE [None]
  - HEPATOSPLENOMEGALY [None]
  - HISTIOCYTOSIS HAEMATOPHAGIC [None]
  - HYPERCOAGULATION [None]
  - HYPERTENSION [None]
  - HYPERTRIGLYCERIDAEMIA [None]
  - INFLAMMATION [None]
  - LEUKOCYTOSIS [None]
  - LOSS OF CONSCIOUSNESS [None]
  - MARROW HYPERPLASIA [None]
  - MIOSIS [None]
  - OESOPHAGEAL CANDIDIASIS [None]
  - ORAL CANDIDIASIS [None]
  - SPUTUM DISCOLOURED [None]
